FAERS Safety Report 15505231 (Version 1)
Quarter: 2018Q4

REPORT INFORMATION
  Report Type: Spontaneous
  Country: DE (occurrence: DE)
  Receive Date: 20181016
  Receipt Date: 20181016
  Transmission Date: 20190205
  Serious: Yes (Other)
  Sender: FDA-Public Use
  Company Number: DE-TEVA-2018-DE-964257

PATIENT
  Age: 79 Year
  Sex: Male
  Weight: 68.6 kg

DRUGS (7)
  1. MARCUMAR [Concomitant]
     Active Substance: PHENPROCOUMON
     Indication: ATRIAL FIBRILLATION
     Route: 048
  2. ELIGARD [Concomitant]
     Active Substance: LEUPROLIDE ACETATE
     Indication: PROSTATE CANCER
     Dosage: 1 DOSAGE FORMS DAILY; DAILY DOSE: 1 DF DOSAGE FORM EVERY 3 MONTHS
     Route: 058
  3. BISOPROLOL [Concomitant]
     Active Substance: BISOPROLOL
     Dosage: 2.5 MILLIGRAM DAILY;
     Route: 048
  4. RAMIPRIL. [Suspect]
     Active Substance: RAMIPRIL
     Indication: ESSENTIAL HYPERTENSION
     Dosage: 5 MILLIGRAM DAILY;
     Route: 048
     Dates: start: 201703, end: 20180903
  5. SALOFALK [Concomitant]
     Active Substance: MESALAMINE
     Indication: DIVERTICULITIS
     Dosage: 1000 MILLIGRAM DAILY;
     Route: 048
  6. PANTOPRAZOL [Concomitant]
     Active Substance: PANTOPRAZOLE SODIUM
     Dosage: 40 MILLIGRAM DAILY;
     Route: 048
  7. LERCANIDIPIN [Concomitant]
     Active Substance: LERCANIDIPINE
     Dosage: 20 MILLIGRAM DAILY;
     Route: 048

REACTIONS (6)
  - Swelling face [Recovering/Resolving]
  - Cough [Recovering/Resolving]
  - Pharyngeal oedema [Recovering/Resolving]
  - Paranasal sinus discomfort [Recovering/Resolving]
  - Muscle spasms [Recovering/Resolving]
  - Dysphagia [Recovering/Resolving]

NARRATIVE: CASE EVENT DATE: 2018
